FAERS Safety Report 10866311 (Version 1)
Quarter: 2015Q1

REPORT INFORMATION
  Report Type: Spontaneous
  Country: BR (occurrence: BR)
  Receive Date: 20150225
  Receipt Date: 20150225
  Transmission Date: 20150721
  Serious: Yes (Other)
  Sender: FDA-Public Use
  Company Number: BR-AMGEN-BRASP2015017121

PATIENT
  Age: 53 Year
  Sex: Female

DRUGS (1)
  1. MIMPARA [Suspect]
     Active Substance: CINACALCET HYDROCHLORIDE
     Indication: HYPERPARATHYROIDISM SECONDARY
     Dosage: 30 MG, UNK
     Route: 065

REACTIONS (6)
  - Bone disorder [Unknown]
  - Bone pain [Unknown]
  - Nausea [Recovered/Resolved with Sequelae]
  - Gait disturbance [Unknown]
  - Vomiting [Unknown]
  - Fracture [Unknown]
